FAERS Safety Report 12459966 (Version 2)
Quarter: 2016Q3

REPORT INFORMATION
  Report Type: Report from Study
  Country: US (occurrence: US)
  Receive Date: 20160613
  Receipt Date: 20160713
  Transmission Date: 20161109
  Serious: Yes (Other)
  Sender: FDA-Public Use
  Company Number: US-009507513-1606USA004436

PATIENT
  Age: 75 Year
  Sex: Male

DRUGS (1)
  1. PEMBROLIZUMAB. [Suspect]
     Active Substance: PEMBROLIZUMAB
     Indication: MALIGNANT MELANOMA
     Dosage: UNK, Q3W
     Route: 042
     Dates: start: 201501

REACTIONS (2)
  - Thyroid function test abnormal [Not Recovered/Not Resolved]
  - Malignant neoplasm progression [Recovering/Resolving]

NARRATIVE: CASE EVENT DATE: 201601
